FAERS Safety Report 22345098 (Version 1)
Quarter: 2023Q2

REPORT INFORMATION
  Report Type: Report from Study
  Country: US (occurrence: US)
  Receive Date: 20230519
  Receipt Date: 20230519
  Transmission Date: 20230722
  Serious: Yes (Other)
  Sender: FDA-Public Use
  Company Number: US-MYLANLABS-2023M1051752

PATIENT
  Age: 32 Year
  Sex: Female

DRUGS (5)
  1. ERYTHROMYCIN [Suspect]
     Active Substance: ERYTHROMYCIN
     Indication: Graft versus host disease in eye
     Dosage: UNK UNK, QD
     Route: 065
  2. DOXYCYCLINE [Suspect]
     Active Substance: DOXYCYCLINE
     Indication: Graft versus host disease in eye
     Dosage: 50 MILLIGRAM, QD
     Route: 065
  3. HEPARIN [Suspect]
     Active Substance: HEPARIN SODIUM
     Indication: Graft versus host disease in eye
     Dosage: 100 IU/ML, TID (DROPS)
     Route: 065
  4. METHYLPREDNISOLONE [Suspect]
     Active Substance: METHYLPREDNISOLONE
     Indication: Graft versus host disease in eye
     Dosage: UNK, 6XD
     Route: 065
  5. Immunoglobulin [Concomitant]
     Indication: Graft versus host disease in eye
     Dosage: UNK, POOLED IMMUNE-GLOBULIN TWO TO THREE TIMES A DAY (DROPS)
     Route: 065
     Dates: start: 201903

REACTIONS (2)
  - Drug ineffective for unapproved indication [Unknown]
  - Off label use [Unknown]
